FAERS Safety Report 9995844 (Version 1)
Quarter: 2014Q1

REPORT INFORMATION
  Report Type: Spontaneous
  Country: US (occurrence: None)
  Receive Date: 20140310
  Receipt Date: 20140310
  Transmission Date: 20141002
  Serious: No
  Sender: FDA-Public Use
  Company Number: None

PATIENT
  Age: 47 Year
  Sex: Female
  Weight: 73.03 kg

DRUGS (1)
  1. ZANAFLEX [Suspect]
     Indication: MUSCLE SPASMS
     Dosage: 1 TAB FOUR TIMES DAILY TAKEN BY MOUTH
     Route: 048
     Dates: start: 20140220, end: 20140306

REACTIONS (3)
  - Hallucination [None]
  - Panic attack [None]
  - Sleep disorder [None]
